FAERS Safety Report 6084612-8 (Version None)
Quarter: 2009Q1

REPORT INFORMATION
  Report Type: 
  Country: None (occurrence: None)
  Receive Date: 20090219
  Receipt Date: 20090210
  Transmission Date: 20090719
  Serious: Yes (Hospitalization, Other)
  Sender: FDA-Public Use
  Company Number: CH-ROXANE LABORATORIES, INC.-2009-RO-00137RO

PATIENT
  Age: 50 Year
  Sex: Male

DRUGS (4)
  1. LITHIUM CARBONATE [Suspect]
     Indication: BIPOLAR DISORDER
  2. LITHIUM CARBONATE [Suspect]
  3. VALPROIC ACID [Suspect]
     Indication: MANIA
  4. VALPROIC ACID [Suspect]
     Dosage: 1000MG

REACTIONS (7)
  - ATAXIA [None]
  - CONVULSION [None]
  - DELUSION [None]
  - DRUG INTERACTION [None]
  - DYSARTHRIA [None]
  - MANIA [None]
  - THERAPEUTIC AGENT TOXICITY [None]
